FAERS Safety Report 4390297-9 (Version None)
Quarter: 2004Q2

REPORT INFORMATION
  Report Type: 
  Country: None (occurrence: None)
  Receive Date: 20040630
  Receipt Date: 20040617
  Transmission Date: 20050107
  Serious: Yes (Death)
  Sender: FDA-Public Use
  Company Number: 2004219607DE

PATIENT
  Age: 41 Year
  Sex: Male

DRUGS (3)
  1. ATGAM [Suspect]
     Indication: THROMBOCYTOPENIA
     Dosage: 100 MG, ONE WEEK, IV
     Route: 042
     Dates: start: 20001101
  2. PREDNISONE TAB [Suspect]
     Indication: THROMBOCYTOPENIA
     Dosage: 100 MG, QD
  3. CYCLOSPORINE [Suspect]
     Indication: THROMBOCYTOPENIA
     Dosage: 70-200 NG/ML,

REACTIONS (8)
  - BONE MARROW DEPRESSION [None]
  - DRUG INEFFECTIVE [None]
  - MULTI-ORGAN FAILURE [None]
  - PANCREATITIS ACUTE [None]
  - PNEUMONIA [None]
  - PYREXIA [None]
  - RENAL FAILURE [None]
  - SEPTIC SHOCK [None]
